FAERS Safety Report 13052096 (Version 1)
Quarter: 2016Q4

REPORT INFORMATION
  Report Type: Spontaneous
  Country: US (occurrence: US)
  Receive Date: 20161221
  Receipt Date: 20161221
  Transmission Date: 20170207
  Serious: Yes (Other)
  Sender: FDA-Public Use
  Company Number: US-PFIZER INC-2016584202

PATIENT
  Sex: Female

DRUGS (2)
  1. FOLINIC ACID [Concomitant]
     Active Substance: LEUCOVORIN
     Indication: PLACENTA PRAEVIA
     Dosage: 0.1 MG/KG, UNK (ON DAY 1,3, 5 , AND 7)
     Route: 030
  2. METHOTREXATE SODIUM. [Suspect]
     Active Substance: METHOTREXATE SODIUM
     Indication: PLACENTA PRAEVIA
     Dosage: 1 MG/KG, PER WEEK (ON DAY 0,2,4, 6)
     Route: 030

REACTIONS (3)
  - Vaginal haemorrhage [Unknown]
  - Disseminated intravascular coagulation [Unknown]
  - Product use issue [Unknown]
